FAERS Safety Report 7488106-4 (Version None)
Quarter: 2011Q2

REPORT INFORMATION
  Report Type: 
  Country: None (occurrence: None)
  Receive Date: 20110517
  Receipt Date: 20110510
  Transmission Date: 20111010
  Serious: Yes (Hospitalization)
  Sender: FDA-Public Use
  Company Number: DL2011-0333

PATIENT
  Age: 26 Year
  Sex: Female

DRUGS (2)
  1. DOXYCYCINE [Concomitant]
  2. MIFEPRISTONE (MIFEPREX) [Suspect]
     Dosage: 800 MCG, BUCCAL
     Route: 002

REACTIONS (4)
  - PELVIC INFLAMMATORY DISEASE [None]
  - ENDOMETRITIS [None]
  - HAEMORRHAGE [None]
  - ABDOMINAL PAIN [None]
